FAERS Safety Report 10184388 (Version 2)
Quarter: 2014Q2

REPORT INFORMATION
  Report Type: Report from Study
  Country: GB (occurrence: GB)
  Receive Date: 20140521
  Receipt Date: 20140530
  Transmission Date: 20141212
  Serious: Yes (Hospitalization)
  Sender: FDA-Public Use
  Company Number: GB-ROCHE-1402194

PATIENT
  Age: 73 Year
  Sex: Male

DRUGS (7)
  1. RANIBIZUMAB [Suspect]
     Indication: RETINAL VEIN OCCLUSION
     Route: 050
     Dates: start: 20120824
  2. RANIBIZUMAB [Suspect]
     Route: 050
     Dates: start: 20131003
  3. PERINDOPRIL [Concomitant]
  4. LANSOPRAZOLE [Concomitant]
  5. DOXAZOSIN MESILATE [Concomitant]
  6. LEVOTHYROXIN [Concomitant]
     Route: 065
     Dates: start: 20081219
  7. ASPIRIN [Concomitant]
     Route: 065
     Dates: start: 20070427

REACTIONS (2)
  - Ulcerative keratitis [Recovered/Resolved with Sequelae]
  - Confusional state [Recovered/Resolved]
